FAERS Safety Report 12931810 (Version 3)
Quarter: 2017Q1

REPORT INFORMATION
  Report Type: Spontaneous
  Country: US (occurrence: US)
  Receive Date: 20161111
  Receipt Date: 20170106
  Transmission Date: 20170428
  Serious: Yes (Other)
  Sender: FDA-Public Use
  Company Number: US-ROCHE-1850490

PATIENT
  Age: 20 Year
  Sex: Female
  Weight: 98.06 kg

DRUGS (1)
  1. XOLAIR [Suspect]
     Active Substance: OMALIZUMAB
     Indication: ASTHMA
     Dosage: 2.0, 2 MONTHS
     Route: 058

REACTIONS (8)
  - Injection site urticaria [Recovered/Resolved with Sequelae]
  - Injection site reaction [Recovered/Resolved with Sequelae]
  - Urticaria [Recovered/Resolved with Sequelae]
  - Injection site pruritus [Recovered/Resolved with Sequelae]
  - Dyspnoea [Unknown]
  - Respiratory symptom [Recovered/Resolved with Sequelae]
  - Injection site erythema [Recovered/Resolved with Sequelae]
  - Paraesthesia [Unknown]

NARRATIVE: CASE EVENT DATE: 20161018
